FAERS Safety Report 4680295-X (Version None)
Quarter: 2005Q2

REPORT INFORMATION
  Report Type: 
  Country: None (occurrence: None)
  Receive Date: 20050601
  Receipt Date: 20050517
  Transmission Date: 20051028
  Serious: Yes (Life-Threatening)
  Sender: FDA-Public Use
  Company Number: 200510360BVD

PATIENT
  Sex: Female

DRUGS (2)
  1. TRASYLOL [Suspect]
     Indication: ANEURYSM
     Dosage: 1000000 KIU, TOTAL DAILY, INTRAVENOUS
     Route: 042
     Dates: start: 20041208
  2. TRASYLOL [Suspect]
     Indication: SURGERY
     Dosage: 1000000 KIU, TOTAL DAILY, INTRAVENOUS
     Route: 042
     Dates: start: 20041208

REACTIONS (19)
  - ANAPHYLACTIC REACTION [None]
  - BLOOD PRESSURE DECREASED [None]
  - BRADYCARDIA [None]
  - CARDIAC ARREST [None]
  - DIALYSIS [None]
  - DISEASE RECURRENCE [None]
  - GENERAL PHYSICAL HEALTH DETERIORATION [None]
  - HAEMODYNAMIC INSTABILITY [None]
  - HAEMOGLOBIN DECREASED [None]
  - HAEMORRHAGIC DIATHESIS [None]
  - HAEMOTHORAX [None]
  - LOCAL SWELLING [None]
  - PLEURAL EFFUSION [None]
  - PNEUMONIA [None]
  - POLYSEROSITIS [None]
  - POST PROCEDURAL COMPLICATION [None]
  - POST PROCEDURAL HAEMORRHAGE [None]
  - RENAL FAILURE [None]
  - RESPIRATORY FAILURE [None]
